FAERS Safety Report 7984671-9 (Version None)
Quarter: 2011Q4

REPORT INFORMATION
  Report Type: 
  Country: None (occurrence: None)
  Receive Date: 20111216
  Receipt Date: 20111109
  Transmission Date: 20120403
  Serious: No
  Sender: FDA-Public Use
  Company Number: US-GLAXOSMITHKLINE-A0841517A

PATIENT
  Age: 54 Year
  Sex: Female

DRUGS (2)
  1. PROMACTA [Suspect]
     Indication: IDIOPATHIC THROMBOCYTOPENIC PURPURA
     Dosage: 50MG ALTERNATE DAYS
     Route: 048
     Dates: start: 20100121, end: 20110621
  2. WINRHO SD [Concomitant]
     Indication: IDIOPATHIC THROMBOCYTOPENIC PURPURA

REACTIONS (2)
  - PLATELET COUNT DECREASED [None]
  - SPLENECTOMY [None]
